FAERS Safety Report 8477316-5 (Version None)
Quarter: 2012Q2

REPORT INFORMATION
  Report Type: 
  Country: None (occurrence: None)
  Receive Date: 20120620
  Receipt Date: 20120611
  Transmission Date: 20120825
  Serious: Yes (Hospitalization)
  Sender: FDA-Public Use
  Company Number: ACO_30308_2012

PATIENT
  Age: 45 Year
  Sex: Female
  Weight: 63.5 kg

DRUGS (6)
  1. ANALGESICS AND ANESTHETICS [Concomitant]
  2. ALL OTHER THERAPEUTIC PRODUCTS [Concomitant]
  3. AMPYRA [Suspect]
     Indication: MULTIPLE SCLEROSIS
     Dosage: 10 MG, Q 12 HRS, ORAL
     Route: 048
     Dates: start: 20110101, end: 20120115
  4. ANTIHYPERTENSIVES [Concomitant]
  5. OTHER LIPID MODIFYING AGENTS [Concomitant]
  6. COPAXONE [Concomitant]

REACTIONS (11)
  - URINARY TRACT INFECTION [None]
  - LOSS OF CONSCIOUSNESS [None]
  - ANXIETY [None]
  - ASTHENIA [None]
  - LACERATION [None]
  - CONVULSION [None]
  - MALAISE [None]
  - FALL [None]
  - MEMORY IMPAIRMENT [None]
  - TREMOR [None]
  - PERSONALITY CHANGE [None]
